FAERS Safety Report 24708511 (Version 4)
Quarter: 2024Q4

REPORT INFORMATION
  Report Type: Spontaneous
  Country: CZ (occurrence: CZ)
  Receive Date: 20241207
  Receipt Date: 20241223
  Transmission Date: 20250115
  Serious: Yes (Hospitalization, Other)
  Sender: AUROBINDO
  Company Number: CZ-EGIS-HUN-2024-1395

PATIENT
  Age: 75 Year
  Sex: Female

DRUGS (30)
  1. OLANZAPINE [Suspect]
     Active Substance: OLANZAPINE
     Indication: Intellectual disability
     Dosage: 5 MILLIGRAM, ONCE A DAY (10 MG TBL. P.O. 0-0-1/2)
     Route: 048
  2. OLANZAPINE [Suspect]
     Active Substance: OLANZAPINE
     Indication: Depressive symptom
  3. OLANZAPINE [Suspect]
     Active Substance: OLANZAPINE
     Indication: Insomnia
  4. AMLODIPINE\PERINDOPRIL [Suspect]
     Active Substance: AMLODIPINE\PERINDOPRIL
     Indication: Product used for unknown indication
     Dosage: UNK(8/5 MG (1-0-0))
     Route: 048
  5. QUETIAPINE [Suspect]
     Active Substance: QUETIAPINE
     Indication: Intellectual disability
     Dosage: 100 MILLIGRAM, TWO TIMES A DAY (100 MG TBL. P.O. 0-1-1)
     Route: 048
  6. QUETIAPINE [Suspect]
     Active Substance: QUETIAPINE
     Indication: Depressive symptom
  7. QUETIAPINE [Suspect]
     Active Substance: QUETIAPINE
     Indication: Insomnia
  8. MIRTAZAPINE [Suspect]
     Active Substance: MIRTAZAPINE
     Indication: Intellectual disability
     Dosage: 15 MILLIGRAM, ONCE A DAY(30 MG TBL. P.O. 0-0-1/2)
     Route: 048
  9. MIRTAZAPINE [Suspect]
     Active Substance: MIRTAZAPINE
     Indication: Restlessness
  10. MIRTAZAPINE [Suspect]
     Active Substance: MIRTAZAPINE
     Indication: Depressive symptom
  11. MIRTAZAPINE [Suspect]
     Active Substance: MIRTAZAPINE
     Indication: Insomnia
  12. RILMENIDINE [Suspect]
     Active Substance: RILMENIDINE
     Indication: Product used for unknown indication
     Dosage: 1 MILLIGRAM((0-0-1))
     Route: 048
  13. TIAPRIDE [Suspect]
     Active Substance: TIAPRIDE
     Indication: Product used for unknown indication
     Dosage: 150 MILLIGRAM, ONCE A DAY(100 MG TBL. P.O. 1/2-1/2-1/2)
     Route: 048
  14. ATORVASTATIN [Concomitant]
     Active Substance: ATORVASTATIN
     Indication: Product used for unknown indication
     Dosage: 10 MILLIGRAM, ONCE A DAY (10 MG TBL. P.O. 0-0-1)
     Route: 048
  15. CITALOPRAM [Concomitant]
     Active Substance: CITALOPRAM
     Indication: Product used for unknown indication
     Dosage: UNK(1-1/2-0)
     Route: 048
  16. PERINDOPRIL/AMLODIPINE HCS [Concomitant]
     Indication: Hypertension
     Dosage: 1 DOSAGE FORM, ONCE A DAY(8/5 MG TABLET ORALLY 1-0-0)
     Route: 048
  17. ASPIRIN [Concomitant]
     Active Substance: ASPIRIN
     Indication: Product used for unknown indication
     Dosage: 100 MILLIGRAM, ONCE A DAY(100 MG TABLET ORALLY 0-1-0)
     Route: 048
  18. OMEPRAZOLE [Concomitant]
     Active Substance: OMEPRAZOLE
     Indication: Product used for unknown indication
     Dosage: UNK(1-0-1)
     Route: 048
  19. RILMENIDINE [Concomitant]
     Active Substance: RILMENIDINE
     Indication: Hypertension
     Dosage: 1 MILLIGRAM, ONCE A DAY(1 MG TABLET ORALLY 0-0-1)
     Route: 048
  20. MIRTAZAPINE [Concomitant]
     Active Substance: MIRTAZAPINE
     Indication: Product used for unknown indication
     Dosage: 15 MILLIGRAM, ONCE A DAY(30 MG TABLET ORALLY 0-0-1/2)
     Route: 048
  21. METFORMIN [Concomitant]
     Active Substance: METFORMIN HYDROCHLORIDE
     Indication: Product used for unknown indication
     Dosage: 1000 MILLIGRAM, ONCE A DAY(500 MG TABLET ORALLY 1-0-1)
     Route: 048
  22. TIAPRIDE [Concomitant]
     Active Substance: TIAPRIDE
     Indication: Product used for unknown indication
     Dosage: 150 MILLIGRAM, ONCE A DAY(100 MG TABLET ORALLY 1/2-1/2-1/2)
     Route: 048
  23. OLANZAPINE [Concomitant]
     Active Substance: OLANZAPINE
     Indication: Product used for unknown indication
     Dosage: 5 MILLIGRAM, ONCE A DAY(10 MG TABLET ORALLY 0-0-1/2)
     Route: 048
  24. OMEPRAZOLE [Suspect]
     Active Substance: OMEPRAZOLE
     Indication: Product used for unknown indication
     Dosage: 40 MILLIGRAM, ONCE A DAY (20 MG P.O. 1-0-1)
     Route: 048
  25. AMLODIPINE\PERINDOPRIL [Concomitant]
     Active Substance: AMLODIPINE\PERINDOPRIL
     Indication: Product used for unknown indication
     Dosage: PERINDOPRIL 8 MG/AMLODIPINE 5 MG TBL. P.O. 1-0-0
     Route: 048
  26. CITALOPRAM [Suspect]
     Active Substance: CITALOPRAM
     Indication: Intellectual disability
     Dosage: 20 MILLIGRAM (20 MG TBL. P.O. 1-1/2-0)
     Route: 048
  27. CITALOPRAM [Suspect]
     Active Substance: CITALOPRAM
     Indication: Restlessness
  28. CITALOPRAM [Suspect]
     Active Substance: CITALOPRAM
     Indication: Depressive symptom
  29. CITALOPRAM [Suspect]
     Active Substance: CITALOPRAM
     Indication: Insomnia
  30. ASPIRIN [Concomitant]
     Active Substance: ASPIRIN
     Indication: Product used for unknown indication
     Dosage: 100 MILLIGRAM (100 MG TBL. P.O. 0-1-0)
     Route: 048

REACTIONS (17)
  - Electrocardiogram QT prolonged [Recovered/Resolved]
  - Drug interaction [Unknown]
  - Hypotension [Recovered/Resolved]
  - Communication disorder [Unknown]
  - Circulatory collapse [Recovered/Resolved]
  - Nausea [Recovered/Resolved]
  - Vomiting [Recovered/Resolved]
  - Muscle twitching [Recovered/Resolved]
  - Epilepsy [Unknown]
  - Hypoosmolar state [Recovered/Resolved]
  - Hypochloraemia [Recovered/Resolved]
  - Myocardial ischaemia [Unknown]
  - Mineral metabolism disorder [Recovered/Resolved]
  - Hyponatraemia [Recovered/Resolved]
  - Sedation [Recovered/Resolved]
  - Product use in unapproved indication [Unknown]
  - Blood osmolarity decreased [Unknown]
